FAERS Safety Report 24066624 (Version 1)
Quarter: 2024Q3

REPORT INFORMATION
  Report Type: Spontaneous
  Country: US (occurrence: None)
  Receive Date: 20240709
  Receipt Date: 20240709
  Transmission Date: 20241016
  Serious: No
  Sender: Public
  Company Number: None

PATIENT
  Age: 16 Year
  Sex: Female
  Weight: 40.82 kg

DRUGS (1)
  1. TALTZ [Suspect]
     Active Substance: IXEKIZUMAB
     Indication: Psoriasis
     Dosage: FREQUENCY : MONTHLY;?
     Route: 058
     Dates: start: 202406

REACTIONS (2)
  - Nasopharyngitis [None]
  - Sinusitis [None]
